FAERS Safety Report 25059334 (Version 2)
Quarter: 2025Q1

REPORT INFORMATION
  Report Type: Report from Study
  Country: TR (occurrence: TR)
  Receive Date: 20250310
  Receipt Date: 20250321
  Transmission Date: 20250409
  Serious: Yes (Death, Hospitalization)
  Sender: TEVA
  Company Number: TR-TEVA-VS-3307293

PATIENT
  Age: 10 Year
  Sex: Male

DRUGS (10)
  1. METHOTREXATE [Suspect]
     Active Substance: METHOTREXATE
     Indication: Prophylaxis against graft versus host disease
     Route: 065
  2. TACROLIMUS [Concomitant]
     Active Substance: TACROLIMUS
     Indication: Graft versus host disease
     Route: 065
  3. RUXOLITINIB [Concomitant]
     Active Substance: RUXOLITINIB
     Indication: Graft versus host disease
     Route: 065
  4. TREOSULFAN [Concomitant]
     Active Substance: TREOSULFAN
     Indication: Bone marrow conditioning regimen
     Route: 065
  5. PREDNISOLONE [Concomitant]
     Active Substance: PREDNISOLONE
     Indication: Diarrhoea
     Route: 065
  6. FOSCARNET [Suspect]
     Active Substance: FOSCARNET
     Indication: Cytomegalovirus infection reactivation
     Route: 065
  7. MYCOPHENOLATE MOFETIL [Concomitant]
     Active Substance: MYCOPHENOLATE MOFETIL
     Indication: Graft versus host disease
     Route: 065
  8. CYCLOSPORINE [Suspect]
     Active Substance: CYCLOSPORINE
     Indication: Prophylaxis against graft versus host disease
     Route: 065
  9. THIOTEPA [Concomitant]
     Active Substance: THIOTEPA
     Indication: Bone marrow conditioning regimen
     Route: 065
  10. FLUDARABINE [Concomitant]
     Active Substance: FLUDARABINE PHOSPHATE
     Indication: Bone marrow conditioning regimen
     Route: 065

REACTIONS (2)
  - Drug resistance [Fatal]
  - Drug ineffective [Fatal]
